FAERS Safety Report 5731759-9 (Version None)
Quarter: 2008Q2

REPORT INFORMATION
  Report Type: 
  Country: None (occurrence: None)
  Receive Date: 20080505
  Receipt Date: 20080505
  Transmission Date: 20081010
  Serious: Yes (Life-Threatening, Hospitalization)
  Sender: FDA-Public Use
  Company Number: None

PATIENT
  Sex: Male
  Weight: 81.6475 kg

DRUGS (1)
  1. SERTRALINE [Suspect]
     Indication: DEPRESSION
     Dosage: 1 PILL IN THE MORNING DAILY PO
     Route: 048
     Dates: start: 20080214, end: 20080422

REACTIONS (9)
  - ABNORMAL BEHAVIOUR [None]
  - AGGRESSION [None]
  - AGITATION [None]
  - ANOREXIA [None]
  - INSOMNIA [None]
  - MULTIPLE DRUG OVERDOSE INTENTIONAL [None]
  - OPPOSITIONAL DEFIANT DISORDER [None]
  - PHYSICAL ASSAULT [None]
  - SUICIDE ATTEMPT [None]
